FAERS Safety Report 12764405 (Version 1)
Quarter: 2016Q3

REPORT INFORMATION
  Report Type: Spontaneous
  Country: US (occurrence: US)
  Receive Date: 20160920
  Receipt Date: 20160920
  Transmission Date: 20161109
  Serious: No
  Sender: FDA-Public Use
  Company Number: US-ALLERGAN-1651117US

PATIENT
  Sex: Male

DRUGS (6)
  1. PREDNISONE. [Concomitant]
     Active Substance: PREDNISONE
     Indication: RETINAL OEDEMA
  2. TRAVATAN Z [Concomitant]
     Active Substance: TRAVOPROST
     Indication: RETINAL OEDEMA
  3. ACULAR [Suspect]
     Active Substance: KETOROLAC TROMETHAMINE
     Indication: RETINAL OEDEMA
  4. PREDNISONE. [Concomitant]
     Active Substance: PREDNISONE
     Indication: GLAUCOMA
     Dosage: UNK
     Route: 047
  5. ACULAR [Suspect]
     Active Substance: KETOROLAC TROMETHAMINE
     Indication: GLAUCOMA
     Dosage: 2 GTT, UNK
     Route: 047
  6. TRAVATAN Z [Concomitant]
     Active Substance: TRAVOPROST
     Indication: GLAUCOMA
     Dosage: UNK
     Route: 047

REACTIONS (2)
  - Fatigue [Not Recovered/Not Resolved]
  - Off label use [Unknown]
